FAERS Safety Report 7268570-6 (Version None)
Quarter: 2011Q1

REPORT INFORMATION
  Report Type: 
  Country: None (occurrence: None)
  Receive Date: 20110201
  Receipt Date: 20110131
  Transmission Date: 20110831
  Serious: Yes (Life-Threatening, Other)
  Sender: FDA-Public Use
  Company Number: MD-ROXANE LABORATORIES, INC.-2011-RO-00123RO

PATIENT
  Age: 36 Year
  Sex: Female

DRUGS (5)
  1. OXCARBAZEPINE [Suspect]
     Indication: EPILEPSY
  2. LEVETIRACETAM [Suspect]
     Indication: EPILEPSY
     Dosage: 1000 MG
  3. PHENOBARBITAL [Suspect]
     Indication: EPILEPSY
  4. LEVETIRACETAM [Suspect]
     Dosage: 2000 MG
  5. LAMOTRIGINE [Suspect]
     Indication: EPILEPSY

REACTIONS (6)
  - CONVULSION [None]
  - NERVOUSNESS [None]
  - SUICIDE ATTEMPT [None]
  - IRRITABILITY [None]
  - DRUG INEFFECTIVE [None]
  - AGITATION [None]
